FAERS Safety Report 5985303-1 (Version None)
Quarter: 2008Q4

REPORT INFORMATION
  Report Type: 
  Country: None (occurrence: None)
  Receive Date: 20081203
  Receipt Date: 20081126
  Transmission Date: 20090506
  Serious: Yes (Hospitalization)
  Sender: FDA-Public Use
  Company Number: 037477

PATIENT
  Age: 57 Year
  Sex: Female

DRUGS (10)
  1. METHOTREXATE [Suspect]
     Indication: RHEUMATOID ARTHRITIS
     Dosage: 8 MG, 1 WEEK, ORAL
     Route: 048
  2. ABATACEPT () [Suspect]
     Indication: RHEUMATOID ARTHRITIS
     Dosage: 500 MG, 4 WEEK, IV DRIP
     Route: 041
     Dates: start: 20070221
  3. PREDNISOLONE [Suspect]
     Indication: RHEUMATOID ARTHRITIS
     Dosage: 2 MG, 1/1 DAY, ORAL
     Route: 048
     Dates: start: 20080513
  4. INDOMETHACIN [Concomitant]
  5. INTENURSE [Concomitant]
  6. GASPORT [Concomitant]
  7. ERISPAN (FLUDIAZEPAM) [Concomitant]
  8. FOLIC ACID [Concomitant]
  9. SENNOSIDE [Concomitant]
  10. MAGNESIUM OXIDE (MAGNESIUM OXIDE) [Concomitant]

REACTIONS (8)
  - C-REACTIVE PROTEIN INCREASED [None]
  - DENTAL CARIES [None]
  - DYSPHAGIA [None]
  - MOVEMENT DISORDER [None]
  - PAIN [None]
  - RADICULAR CYST [None]
  - SWELLING [None]
  - TOOTH DISORDER [None]
